FAERS Safety Report 12899684 (Version 1)
Quarter: 2016Q4

REPORT INFORMATION
  Report Type: Spontaneous
  Country: US (occurrence: US)
  Receive Date: 20161101
  Receipt Date: 20161101
  Transmission Date: 20170207
  Serious: Yes (Other)
  Sender: FDA-Public Use
  Company Number: US-GLAXOSMITHKLINE-US2016159721

PATIENT
  Age: 84 Year
  Sex: Female

DRUGS (1)
  1. PREVACID [Suspect]
     Active Substance: LANSOPRAZOLE
     Indication: GASTROOESOPHAGEAL REFLUX DISEASE
     Dosage: UNK
     Route: 048
     Dates: start: 2013

REACTIONS (6)
  - Dysuria [Unknown]
  - Pelvic pain [Unknown]
  - Pain [Unknown]
  - Burning sensation [Unknown]
  - Intentional product use issue [Unknown]
  - Kidney infection [Recovered/Resolved]
